FAERS Safety Report 24195255 (Version 1)
Quarter: 2024Q3

REPORT INFORMATION
  Report Type: Spontaneous
  Country: US (occurrence: US)
  Receive Date: 20240809
  Receipt Date: 20240809
  Transmission Date: 20241017
  Serious: No
  Sender: BAYER
  Company Number: US-BAYER-2024A111389

PATIENT
  Sex: Male

DRUGS (2)
  1. KERENDIA [Suspect]
     Active Substance: FINERENONE
  2. VYNDAMAX [Concomitant]
     Active Substance: TAFAMIDIS
     Dosage: 61 MG

REACTIONS (2)
  - Ageusia [None]
  - Stomatitis [None]

NARRATIVE: CASE EVENT DATE: 20240101
